FAERS Safety Report 21883630 (Version 1)
Quarter: 2023Q1

REPORT INFORMATION
  Report Type: Spontaneous
  Country: DE (occurrence: DE)
  Receive Date: 20230119
  Receipt Date: 20230119
  Transmission Date: 20230418
  Serious: Yes (Other)
  Sender: FDA-Public Use
  Company Number: DE-INTERPHARM-MWE-IPA-22_00005

PATIENT
  Age: 29 Year
  Sex: Male

DRUGS (22)
  1. LENALIDOMIDE [Suspect]
     Active Substance: LENALIDOMIDE
     Indication: Immunomodulatory therapy
  2. LENALIDOMIDE [Suspect]
     Active Substance: LENALIDOMIDE
     Dates: start: 2021
  3. ZOLEDRONIC ACID [Suspect]
     Active Substance: ZOLEDRONIC ACID
     Indication: Pain
     Dosage: UNK
     Dates: start: 2021
  4. ZOLEDRONIC ACID [Suspect]
     Active Substance: ZOLEDRONIC ACID
     Indication: Analgesic therapy
     Route: 042
  5. AMITRIPTYLINE HYDROCHLORIDE [Suspect]
     Active Substance: AMITRIPTYLINE HYDROCHLORIDE
     Indication: Pain
     Dosage: 25 MG 1X/D FOR NIGHT
  6. IBUPROFEN [Suspect]
     Active Substance: IBUPROFEN
     Indication: Bone pain
     Dosage: THERAPY WITH IBUPROFEN IN UNKNOWN DOSAGE WHENEVER AFFLICTED WITH BONE PAIN?FROM: //2016 TO: WHENEVER
     Dates: start: 2016
  7. PREGABALIN [Suspect]
     Active Substance: PREGABALIN
     Indication: Pain
     Dosage: 150 MG OF PREGABALIN IN THE MORNING AND IN THE EVENING
     Dates: start: 2019
  8. PREGABALIN [Suspect]
     Active Substance: PREGABALIN
     Indication: Analgesic therapy
     Dosage: 50 MG, QD (THREE TIMES A DAY; 50-50-150 MG)
     Dates: start: 2019
  9. PREGABALIN [Suspect]
     Active Substance: PREGABALIN
     Dosage: 300 MG, QD
  10. PREGABALIN [Suspect]
     Active Substance: PREGABALIN
     Dosage: PREGABALIN THREE TIMES A DAY
  11. HYDROMORPHONE [Suspect]
     Active Substance: HYDROMORPHONE
     Indication: Pain
     Dosage: 16 MG, QD (16 MG HYDROMORPHONE IN A 24-HOUR GALENIC/ EVERY 24)
     Dates: start: 2017
  12. HERBALS\TETRAHYDROCANNABINOL UNSPECIFIED [Suspect]
     Active Substance: HERBALS\TETRAHYDROCANNABINOL UNSPECIFIED
     Indication: Pain
     Dosage: A DAILY DOSE OF 2.5-2.5-7.5 MG THC 10 ADMINISTERED)
     Route: 048
     Dates: start: 2022
  13. AMBROXOL [Suspect]
     Active Substance: AMBROXOL
     Indication: Arthralgia
     Dosage: UNK, (CREAM CONTAINING 20% AMBROXOL) CREAM CONTAINING 20% AMBROXOL
     Dates: start: 2019
  14. OXYCODONE [Suspect]
     Active Substance: OXYCODONE
     Indication: Analgesic therapy
     Dosage: 100 MG, Q8H
     Route: 048
  15. OXYCODONE [Suspect]
     Active Substance: OXYCODONE
     Dosage: ORAL OPIOID THERAPY WITH PROLONGED-RELEASE OXYCODONE
     Route: 048
  16. OXYCODONE [Suspect]
     Active Substance: OXYCODONE
     Dosage: (30-30-40 MG)
     Route: 048
  17. DICLOFENAC [Suspect]
     Active Substance: DICLOFENAC
     Indication: Bone pain
     Dosage: NON-STEROIDAL ANTI-INFLAMMATORY DRUG DICLOFENAC
  18. DICLOFENAC [Suspect]
     Active Substance: DICLOFENAC
     Indication: Pain
  19. MORPHINE SULFATE [Suspect]
     Active Substance: MORPHINE SULFATE
     Indication: Pain
     Dosage: 6-8TIMES DAILY
  20. MORPHINE SULFATE [Suspect]
     Active Substance: MORPHINE SULFATE
     Dosage: 6-8 TIMES DAILY
     Route: 048
  21. CANNABINOL [Concomitant]
     Active Substance: CANNABINOL
     Indication: Product used for unknown indication
     Dosage: 2.5 - 2.5 - 7.5 MG THC 10 ORAL / DAY
     Route: 048
     Dates: start: 2020
  22. VITAMIN D [Concomitant]
     Active Substance: VITAMIN D NOS
     Indication: Product used for unknown indication
     Dates: start: 2017

REACTIONS (8)
  - Malignant neoplasm progression [Not Recovered/Not Resolved]
  - Fatigue [Not Recovered/Not Resolved]
  - Somnolence [Recovered/Resolved]
  - Sleep disorder [Recovered/Resolved]
  - Decreased appetite [Recovered/Resolved]
  - Depression [Recovered/Resolved]
  - Condition aggravated [Recovered/Resolved]
  - Prescribed overdose [Unknown]

NARRATIVE: CASE EVENT DATE: 20170101
